FAERS Safety Report 4625744-8 (Version None)
Quarter: 2005Q1

REPORT INFORMATION
  Report Type: 
  Country: None (occurrence: None)
  Receive Date: 20050330
  Receipt Date: 20050310
  Transmission Date: 20050727
  Serious: Yes (Death, Hospitalization, Other)
  Sender: FDA-Public Use
  Company Number: GBS050316885

PATIENT
  Age: 28 Year
  Sex: Female
  Weight: 140 kg

DRUGS (2)
  1. ZYPREXA [Suspect]
     Indication: SCHIZOPHRENIA
     Dosage: 20 MG
  2. ZOPICLONE [Concomitant]

REACTIONS (6)
  - ABNORMAL BEHAVIOUR [None]
  - ASPHYXIA [None]
  - CYANOSIS [None]
  - FEELING ABNORMAL [None]
  - SNORING [None]
  - WEIGHT INCREASED [None]
